FAERS Safety Report 14345290 (Version 3)
Quarter: 2018Q1

REPORT INFORMATION
  Report Type: Report from Study
  Country: HU (occurrence: HU)
  Receive Date: 20180103
  Receipt Date: 20180117
  Transmission Date: 20180509
  Serious: Yes (Death, Life-Threatening, Hospitalization)
  Sender: FDA-Public Use
  Company Number: HU-ROCHE-1877623

PATIENT
  Age: 66 Year
  Sex: Male

DRUGS (9)
  1. ZELBORAF [Suspect]
     Active Substance: VEMURAFENIB
     Indication: METASTATIC MALIGNANT MELANOMA
     Route: 048
     Dates: start: 20161224, end: 20171130
  2. INSUMAN BASAL [Concomitant]
     Active Substance: INSULIN HUMAN
  3. MERCKFORMIN [Concomitant]
     Active Substance: METFORMIN HYDROCHLORIDE
     Indication: DIABETES MELLITUS
  4. ZELBORAF [Suspect]
     Active Substance: VEMURAFENIB
     Dosage: 720 MG X 2
     Route: 048
  5. COTELLIC [Suspect]
     Active Substance: COBIMETINIB
     Route: 048
     Dates: start: 20171030, end: 20171130
  6. COTELLIC [Suspect]
     Active Substance: COBIMETINIB
     Route: 048
  7. ZELBORAF [Suspect]
     Active Substance: VEMURAFENIB
     Route: 048
     Dates: start: 20171130
  8. COTELLIC [Suspect]
     Active Substance: COBIMETINIB
     Route: 048
     Dates: start: 2017, end: 20171030
  9. COTELLIC [Suspect]
     Active Substance: COBIMETINIB
     Indication: METASTATIC MALIGNANT MELANOMA
     Route: 048
     Dates: start: 20161224, end: 20170223

REACTIONS (21)
  - Lip erythema [Recovered/Resolved]
  - Oedema peripheral [Not Recovered/Not Resolved]
  - Erythema [Recovered/Resolved]
  - Thermal burn [Unknown]
  - Arthralgia [Recovered/Resolved]
  - Status epilepticus [Fatal]
  - Diabetic nephropathy [Recovered/Resolved]
  - Ear pruritus [Not Recovered/Not Resolved]
  - Metastases to central nervous system [Fatal]
  - Erythema [Recovered/Resolved]
  - Protein total increased [Unknown]
  - Soft tissue mass [Recovered/Resolved]
  - Oedema peripheral [Unknown]
  - Pneumonia [Fatal]
  - Blister [Recovered/Resolved]
  - Vision blurred [Recovered/Resolved]
  - Tracheobronchitis [Fatal]
  - General physical condition abnormal [Unknown]
  - Rash [Unknown]
  - Erythema [Unknown]
  - Oedema peripheral [Recovering/Resolving]

NARRATIVE: CASE EVENT DATE: 20161227
